FAERS Safety Report 11398445 (Version 1)
Quarter: 2015Q3

REPORT INFORMATION
  Report Type: Spontaneous
  Country: US (occurrence: None)
  Receive Date: 20150818
  Receipt Date: 20150818
  Transmission Date: 20151125
  Serious: Yes (Hospitalization)
  Sender: FDA-Public Use
  Company Number: None

PATIENT
  Age: 73 Year
  Sex: Male
  Weight: 92.08 kg

DRUGS (17)
  1. VITAMIN B [Concomitant]
     Active Substance: VITAMIN B
  2. LOVENOX [Concomitant]
     Active Substance: ENOXAPARIN SODIUM
  3. PROVOCHOL [Concomitant]
  4. COLASE [Concomitant]
  5. HCZT [Concomitant]
  6. MIRALAX [Concomitant]
     Active Substance: POLYETHYLENE GLYCOL 3350
  7. VITAMIN E [Suspect]
     Active Substance: .ALPHA.-TOCOPHEROL
  8. WARFARIN [Concomitant]
     Active Substance: WARFARIN
  9. PROCHROLOPERAZINE [Concomitant]
  10. LASIX [Concomitant]
     Active Substance: FUROSEMIDE
  11. SENEKOT [Concomitant]
  12. PREVECID [Concomitant]
  13. OCCUVITE [Concomitant]
  14. CENTRUM SILVER [Concomitant]
     Active Substance: VITAMINS
  15. RESTASIS [Suspect]
     Active Substance: CYCLOSPORINE
     Indication: DRY EYE
  16. ONDANSETRON [Concomitant]
     Active Substance: ONDANSETRON
  17. POTASSIUM [Concomitant]
     Active Substance: POTASSIUM

REACTIONS (2)
  - Eye disorder [None]
  - Eye irritation [None]

NARRATIVE: CASE EVENT DATE: 20150706
